FAERS Safety Report 14529882 (Version 1)
Quarter: 2018Q1

REPORT INFORMATION
  Report Type: Spontaneous
  Country: HU (occurrence: HU)
  Receive Date: 20180214
  Receipt Date: 20180214
  Transmission Date: 20180509
  Serious: Yes (Other)
  Sender: FDA-Public Use
  Company Number: HU-009507513-1802HUN005985

PATIENT
  Age: 74 Year
  Sex: Male
  Weight: 81.9 kg

DRUGS (11)
  1. KEYTRUDA [Suspect]
     Active Substance: PEMBROLIZUMAB
     Indication: LUNG ADENOCARCINOMA
     Dosage: CYCLE 1-6
     Dates: start: 20170816
  2. KEYTRUDA [Suspect]
     Active Substance: PEMBROLIZUMAB
     Indication: METASTASES TO LUNG
     Dosage: 7TH CYCLE
     Route: 042
     Dates: end: 20180110
  3. CONTRAMAL [Concomitant]
     Active Substance: TRAMADOL HYDROCHLORIDE
     Dosage: 2X1 CAPULE, IF NEEDED
  4. THOREUS [Concomitant]
     Dosage: 1 DF, BID
  5. NOACID (PANTOPRAZOLE SODIUM) [Concomitant]
     Dosage: 1 DF, BID
  6. DICINONE [Concomitant]
     Dosage: 1 DF, BID
  7. VENTOLIN [Concomitant]
     Active Substance: ALBUTEROL SULFATE
     Dosage: 1-2 PUFF, MAX 4X2
  8. KEYTRUDA [Suspect]
     Active Substance: PEMBROLIZUMAB
     Dosage: 8TH CYCLE
     Route: 042
     Dates: start: 20180110
  9. BRETARIS GENUAIR [Concomitant]
     Active Substance: ACLIDINIUM BROMIDE
     Dosage: 1 DF, BID
  10. NEO FERRO FOLGAMMA [Concomitant]
     Dosage: 2 DF, BID
  11. BISOBLOCK [Concomitant]
     Active Substance: BISOPROLOL FUMARATE
     Dosage: 0.5 DF, BID

REACTIONS (2)
  - Haemoptysis [Recovered/Resolved]
  - Pneumonitis [Recovered/Resolved]

NARRATIVE: CASE EVENT DATE: 20180104
